FAERS Safety Report 5779606-3 (Version None)
Quarter: 2008Q2

REPORT INFORMATION
  Report Type: 
  Country: None (occurrence: None)
  Receive Date: 20080619
  Receipt Date: 20071101
  Transmission Date: 20081010
  Serious: No
  Sender: FDA-Public Use
  Company Number: US-ASTRAZENECA-2007UW25383

PATIENT
  Age: 83 Year
  Sex: Female
  Weight: 47.2 kg

DRUGS (4)
  1. ATACAND HCT [Suspect]
     Dosage: 16-12.5 MG
     Route: 048
  2. TOPROL-XL [Concomitant]
     Route: 048
  3. THYROXIN [Concomitant]
  4. XANAX [Concomitant]

REACTIONS (3)
  - BLOODY DISCHARGE [None]
  - NAUSEA [None]
  - SENSATION OF HEAVINESS [None]
